FAERS Safety Report 4694878-4 (Version None)
Quarter: 2005Q2

REPORT INFORMATION
  Report Type: 
  Country: None (occurrence: None)
  Receive Date: 20050617
  Receipt Date: 20050606
  Transmission Date: 20051028
  Serious: Yes (Disabling, Other)
  Sender: FDA-Public Use
  Company Number: 2005063220

PATIENT
  Sex: Female
  Weight: 72.5755 kg

DRUGS (7)
  1. BEXTRA [Suspect]
     Indication: OSTEOARTHRITIS
     Dosage: 20 MG (20 MG, 1 IN 1 D)
  2. DURAGESIC (FENTANYL) [Concomitant]
  3. SOMA [Concomitant]
  4. VALIUM [Concomitant]
  5. OXYCODONE HCL [Concomitant]
  6. OXYCODONE (OXYCODONE) [Concomitant]
  7. ELAVIL [Concomitant]

REACTIONS (2)
  - CHONDROMALACIA [None]
  - CYST [None]
